FAERS Safety Report 9068479 (Version 3)
Quarter: 2013Q1

REPORT INFORMATION
  Report Type: Spontaneous
  Country: US (occurrence: US)
  Receive Date: 20130206
  Receipt Date: 20130314
  Transmission Date: 20140127
  Serious: Yes (Other)
  Sender: FDA-Public Use
  Company Number: US-ELI_LILLY_AND_COMPANY-US201211006892

PATIENT
  Sex: Male
  Weight: 78.46 kg

DRUGS (18)
  1. HUMULIN 30% REGULAR, 70% NPH [Suspect]
     Indication: TYPE 1 DIABETES MELLITUS
     Dosage: 36 U, EACH MORNING
     Route: 058
  2. HUMULIN 30% REGULAR, 70% NPH [Suspect]
     Dosage: 33 U, PRN
     Route: 058
  3. ASPIRIN [Concomitant]
     Dosage: 325 MG, UNK
  4. ASPIRIN [Concomitant]
     Dosage: 81 MG, UNK
  5. PLAVIX [Concomitant]
     Dosage: UNK, QD
  6. PLAVIX [Concomitant]
     Dosage: UNK, QOD
     Route: 048
  7. AMITRIPTYLINE [Concomitant]
     Dosage: 10 MG, UNK
     Route: 048
  8. BENAZEPRIL [Concomitant]
     Dosage: 20 MG, UNK
     Route: 048
  9. CARVEDILOL [Concomitant]
     Dosage: 6.25 MG, UNK
     Route: 048
  10. DIGOXIN [Concomitant]
     Dosage: 250 UG, UNK
     Route: 048
  11. DILTIAZEM CD [Concomitant]
     Dosage: 180 MG, QD
     Route: 048
  12. FLURAZEPAM [Concomitant]
  13. FUROSEMIDE [Concomitant]
     Dosage: 20 MG, UNK
     Route: 048
  14. LIPITOR [Concomitant]
     Dosage: 80 MG, UNK
     Route: 048
  15. SERTRALINE [Concomitant]
     Dosage: 50 MG, UNK
     Route: 048
  16. VITAMIN B COMPLEX [Concomitant]
  17. LATANOPROST [Concomitant]
     Dosage: 1 DF, QD
     Route: 047
  18. TIMOPTIC [Concomitant]
     Dosage: 1 DF, QD
     Route: 047

REACTIONS (2)
  - Vitreous haemorrhage [Recovered/Resolved]
  - Visual acuity reduced [Recovered/Resolved]
